FAERS Safety Report 8489147-0 (Version None)
Quarter: 2012Q3

REPORT INFORMATION
  Report Type: 
  Country: None (occurrence: None)
  Receive Date: 20120705
  Receipt Date: 20120626
  Transmission Date: 20120928
  Serious: Yes (Hospitalization)
  Sender: FDA-Public Use
  Company Number: FR-ASTRAZENECA-2012SE33691

PATIENT
  Age: 394 Month
  Sex: Female

DRUGS (5)
  1. HALDOL [Concomitant]
     Indication: SCHIZOPHRENIA
     Route: 048
  2. LEPTICUR [Concomitant]
  3. QUETIAPINE FUMARATE [Suspect]
     Indication: SCHIZOPHRENIA
     Route: 048
     Dates: start: 20111122, end: 20120515
  4. FORLAX [Concomitant]
     Dates: end: 20120501
  5. XANAX [Concomitant]
     Route: 048

REACTIONS (2)
  - CONGESTIVE CARDIOMYOPATHY [None]
  - CARDIAC FAILURE [None]
